FAERS Safety Report 16928770 (Version 1)
Quarter: 2019Q4

REPORT INFORMATION
  Report Type: Spontaneous
  Country: GT (occurrence: GT)
  Receive Date: 20191017
  Receipt Date: 20191017
  Transmission Date: 20200122
  Serious: Yes (Hospitalization)
  Sender: FDA-Public Use
  Company Number: GT-SA-2019SA284723

PATIENT
  Age: 75 Year
  Sex: Female
  Weight: 78.01 kg

DRUGS (3)
  1. NEUROBION [PYRIDOXINE HYDROCHLORIDE;THIAMINE HYDROCHLORIDE] [Concomitant]
     Indication: STRESS
     Dosage: UNK (2 INJECTABLE SOLUTION/EVERY 22 DAYS)
  2. APROVEL [Suspect]
     Active Substance: IRBESARTAN
     Indication: HYPERTENSION
     Dosage: 1 DF, QD
     Dates: start: 201908
  3. APROVEL [Suspect]
     Active Substance: IRBESARTAN
     Indication: HYPERTENSION
     Dosage: 1 DF, QD
     Route: 048
     Dates: start: 2015, end: 201908

REACTIONS (3)
  - Blood pressure inadequately controlled [Recovered/Resolved]
  - Stress [Not Recovered/Not Resolved]
  - Headache [Recovered/Resolved]

NARRATIVE: CASE EVENT DATE: 201908
